FAERS Safety Report 8818139 (Version 4)
Quarter: 2013Q2

REPORT INFORMATION
  Report Type: Report from Study
  Country: AU (occurrence: AU)
  Receive Date: 20121001
  Receipt Date: 20130509
  Transmission Date: 20140414
  Serious: Yes (Life-Threatening, Hospitalization)
  Sender: FDA-Public Use
  Company Number: AU-ROCHE-1139720

PATIENT
  Age: 51 Year
  Sex: Male

DRUGS (6)
  1. PEG-INTERFERON ALFA 2A [Suspect]
     Indication: HEPATITIS C
     Route: 058
     Dates: start: 20120622, end: 20120907
  2. RIBAVIRIN [Suspect]
     Indication: HEPATITIS C
     Dosage: DIVIDED DOSE
     Route: 048
     Dates: start: 20120622, end: 20120907
  3. GS 5885 (HCV NS5A INHIBITOR) [Suspect]
     Indication: HEPATITIS C
     Route: 048
     Dates: start: 20120622, end: 20120907
  4. GS 9451 (NS3 PROTEASE INHIBITOR) [Suspect]
     Indication: HEPATITIS C
     Route: 048
     Dates: start: 20120622, end: 20120907
  5. VENTOLIN [Concomitant]
     Route: 065
     Dates: start: 2002
  6. PARACETAMOL [Concomitant]
     Route: 065
     Dates: start: 20120702, end: 20120810

REACTIONS (1)
  - Pancytopenia [Not Recovered/Not Resolved]
